FAERS Safety Report 18712660 (Version 2)
Quarter: 2021Q1

REPORT INFORMATION
  Report Type: Spontaneous
  Country: US (occurrence: US)
  Receive Date: 20210107
  Receipt Date: 20210119
  Transmission Date: 20210419
  Serious: Yes (Other)
  Sender: FDA-Public Use
  Company Number: US-PFIZER INC-2021006411

PATIENT
  Age: 71 Year
  Sex: Male

DRUGS (5)
  1. CHOLESTYRAMINE RESIN [Concomitant]
     Active Substance: CHOLESTYRAMINE
     Dosage: 4 G, 1X/DAY, (AT BEDTIME)
  2. TICLOPIDINE [Interacting]
     Active Substance: TICLOPIDINE
     Indication: TRANSIENT ISCHAEMIC ATTACK
     Dosage: 250 MG, 2X/DAY
  3. PHENYTOIN. [Interacting]
     Active Substance: PHENYTOIN
     Dosage: 200 MG, DAILY
  4. PHENYTOIN. [Suspect]
     Active Substance: PHENYTOIN
     Dosage: 350 MG, DAILY
  5. PHENOBARBITAL. [Concomitant]
     Active Substance: PHENOBARBITAL
     Dosage: 90 MG, DAILY

REACTIONS (5)
  - Muscular weakness [Recovered/Resolved]
  - Drug level increased [Recovered/Resolved]
  - Gait disturbance [Recovered/Resolved]
  - Drug interaction [Recovered/Resolved]
  - Toxicity to various agents [Recovered/Resolved]
